FAERS Safety Report 25845832 (Version 1)
Quarter: 2025Q3

REPORT INFORMATION
  Report Type: Spontaneous
  Country: IQ (occurrence: IQ)
  Receive Date: 20250925
  Receipt Date: 20250925
  Transmission Date: 20251021
  Serious: Yes (Other)
  Sender: RANBAXY
  Company Number: IQ-SUN PHARMACEUTICAL INDUSTRIES INC-2025RR-528457

PATIENT
  Age: 28 Year

DRUGS (2)
  1. IBUPROFEN [Suspect]
     Active Substance: IBUPROFEN
     Indication: Arthralgia
     Dosage: 400 MILLIGRAM, 3-4 TIMES DAILY
     Route: 065
  2. IBUPROFEN [Suspect]
     Active Substance: IBUPROFEN
     Indication: Musculoskeletal stiffness

REACTIONS (3)
  - Cardiac aneurysm [Unknown]
  - Gastrointestinal disorder [Recovering/Resolving]
  - Self-medication [Recovering/Resolving]
